FAERS Safety Report 6581778-8 (Version None)
Quarter: 2010Q1

REPORT INFORMATION
  Report Type: 
  Country: None (occurrence: None)
  Receive Date: 20100215
  Receipt Date: 20100210
  Transmission Date: 20100710
  Serious: Yes (Life-Threatening, Hospitalization, Disabling, Other)
  Sender: FDA-Public Use
  Company Number: PHHY2009DE53925

PATIENT
  Sex: Female

DRUGS (11)
  1. FEMARA [Suspect]
     Indication: BREAST CANCER
     Dosage: 2.5 MG, QD
     Route: 048
     Dates: start: 20070101, end: 20091101
  2. ANTIHYPERTENSIVES [Concomitant]
  3. ANALGESICS [Concomitant]
  4. MIRTAZAPINE [Concomitant]
  5. ALENDRONATE SODIUM [Concomitant]
  6. CALCIUM D3 [Concomitant]
  7. LEVOTHYROXINE SODIUM [Concomitant]
  8. BISOPROLOL [Concomitant]
  9. ACETYLSALICYLIC ACID [Concomitant]
  10. TILIDINE [Concomitant]
  11. OMEPRAZOLE [Concomitant]

REACTIONS (13)
  - BACK PAIN [None]
  - DEPRESSION [None]
  - DIZZINESS [None]
  - FALL [None]
  - FEMORAL NECK FRACTURE [None]
  - HEADACHE [None]
  - HIP ARTHROPLASTY [None]
  - HYPERTENSION [None]
  - INSOMNIA [None]
  - JAW DISORDER [None]
  - OSTEOPOROSIS [None]
  - SPINAL FRACTURE [None]
  - TONGUE NEOPLASM [None]
